FAERS Safety Report 4316499-5 (Version None)
Quarter: 2004Q1

REPORT INFORMATION
  Report Type: 
  Country: None (occurrence: None)
  Receive Date: 20040312
  Receipt Date: 20040302
  Transmission Date: 20041129
  Serious: Yes (Hospitalization)
  Sender: FDA-Public Use
  Company Number: WAES 0403NLD00006

PATIENT
  Age: 61 Year
  Sex: Female

DRUGS (18)
  1. ACETAMINOPHEN [Concomitant]
     Route: 048
  2. ALBUTEROL SULFATE [Concomitant]
     Route: 055
  3. FOSAMAX [Suspect]
     Indication: OSTEOPOROSIS
     Route: 048
     Dates: end: 20020101
  4. ALFACALCIDOL [Concomitant]
     Route: 048
  5. MODURETIC 5-50 [Concomitant]
  6. CALCIUM CARBONATE [Concomitant]
     Route: 048
  7. CLARITHROMYCIN [Concomitant]
     Route: 048
  8. CLEMASTINE FUMARATE [Concomitant]
     Route: 048
  9. ENALAPRIL MALEATE [Concomitant]
     Route: 048
  10. OMEPRAZOLE MAGNESIUM [Concomitant]
     Route: 048
  11. PHENPROCOUMON [Concomitant]
  12. POTASSIUM CHLORIDE [Concomitant]
     Route: 048
  13. PREDNISOLONE [Concomitant]
     Route: 048
  14. PREDNISONE [Concomitant]
     Route: 048
  15. SALMETEROL XINAFOATE [Concomitant]
     Route: 055
  16. ZOCOR [Concomitant]
     Route: 048
  17. THEOPHYLLINE [Concomitant]
  18. TRAMADOL HYDROCHLORIDE [Concomitant]
     Route: 048

REACTIONS (8)
  - DIAPHRAGMATIC HERNIA [None]
  - DYSPNOEA [None]
  - GASTRITIS [None]
  - GASTROOESOPHAGEAL REFLUX DISEASE [None]
  - HYPERSENSITIVITY [None]
  - PNEUMOMEDIASTINUM [None]
  - PYREXIA [None]
  - SUBCUTANEOUS EMPHYSEMA [None]
